FAERS Safety Report 9193428 (Version 4)
Quarter: 2016Q1

REPORT INFORMATION
  Report Type: Spontaneous
  Country: FI (occurrence: FI)
  Receive Date: 20130327
  Receipt Date: 20160318
  Transmission Date: 20160526
  Serious: Yes (Other)
  Sender: FDA-Public Use
  Company Number: FI-ROCHE-1202063

PATIENT
  Age: 62 Year
  Sex: Male
  Weight: 74 kg

DRUGS (5)
  1. XELODA [Suspect]
     Active Substance: CAPECITABINE
     Indication: ADENOCARCINOMA OF COLON
     Dosage: 1500MG + 2000MG/DAY
     Route: 048
     Dates: start: 20090602
  2. OXALIPLATIN. [Suspect]
     Active Substance: OXALIPLATIN
     Indication: ADENOCARCINOMA OF COLON
     Route: 065
     Dates: start: 20090602
  3. AVASTIN [Suspect]
     Active Substance: BEVACIZUMAB
     Indication: ADENOCARCINOMA OF COLON
     Route: 065
     Dates: start: 20090602
  4. XELODA [Suspect]
     Active Substance: CAPECITABINE
     Dosage: DOSE DECRESED TO 1000MG + 1500MG /DAY
     Route: 048
     Dates: end: 20120115
  5. XATRAL SR [Concomitant]
     Active Substance: ALFUZOSIN
     Indication: BENIGN PROSTATIC HYPERPLASIA
     Route: 065

REACTIONS (14)
  - Nausea [Unknown]
  - Oedema peripheral [Recovered/Resolved]
  - Carbohydrate antigen 19-9 increased [Unknown]
  - Atrial fibrillation [Recovered/Resolved]
  - Allodynia [Recovered/Resolved]
  - Protein urine [Recovered/Resolved]
  - Palmar-plantar erythrodysaesthesia syndrome [Recovered/Resolved]
  - Diarrhoea [Recovered/Resolved]
  - Neuropathy peripheral [Recovered/Resolved with Sequelae]
  - Hypertension [Recovered/Resolved]
  - Cognitive disorder [Recovered/Resolved]
  - Laryngospasm [Recovered/Resolved]
  - Hypersensitivity [Recovered/Resolved]
  - Hyperglycaemia [Recovered/Resolved]

NARRATIVE: CASE EVENT DATE: 20090805
